FAERS Safety Report 7640663-0 (Version None)
Quarter: 2011Q3

REPORT INFORMATION
  Report Type: 
  Country: None (occurrence: None)
  Receive Date: 20110721
  Receipt Date: 20110707
  Transmission Date: 20111222
  Serious: Yes (Other)
  Sender: FDA-Public Use
  Company Number: 2011MA008799

PATIENT
  Age: 52 Year
  Sex: Male

DRUGS (1)
  1. VALACYCLOVIR HYDROCHLORIDE [Suspect]
     Indication: HERPES SIMPLEX
     Dosage: 1000 MG;TID;PO
     Route: 048
     Dates: start: 20110221, end: 20110304

REACTIONS (14)
  - PHARYNGEAL ERYTHEMA [None]
  - THROAT IRRITATION [None]
  - TONGUE DISORDER [None]
  - PRURITUS [None]
  - SWOLLEN TONGUE [None]
  - OROPHARYNGEAL PAIN [None]
  - DYSPHONIA [None]
  - PARAESTHESIA [None]
  - PYREXIA [None]
  - DYSPNOEA [None]
  - SUFFOCATION FEELING [None]
  - MALAISE [None]
  - MUSCLE CONTRACTIONS INVOLUNTARY [None]
  - FEAR [None]
